FAERS Safety Report 4418024-7 (Version None)
Quarter: 2004Q3

REPORT INFORMATION
  Report Type: 
  Country: None (occurrence: None)
  Receive Date: 20040803
  Receipt Date: 20040716
  Transmission Date: 20050211
  Serious: Yes (Hospitalization)
  Sender: FDA-Public Use
  Company Number: BE-JNJFOC-20040701959

PATIENT
  Age: 13 Year
  Sex: Female

DRUGS (1)
  1. VERMOX [Suspect]
     Indication: ENTEROBIASIS
     Dosage: 100 MG, 3 IN 1 DAY, ORAL
     Route: 048
     Dates: start: 20040601, end: 20040601

REACTIONS (2)
  - ANAEMIA HAEMOLYTIC AUTOIMMUNE [None]
  - COOMBS POSITIVE HAEMOLYTIC ANAEMIA [None]
